FAERS Safety Report 11916913 (Version 3)
Quarter: 2016Q1

REPORT INFORMATION
  Report Type: Spontaneous
  Country: US (occurrence: US)
  Receive Date: 20160114
  Receipt Date: 20160225
  Transmission Date: 20160526
  Serious: No
  Sender: FDA-Public Use
  Company Number: US-PFIZER INC-2015464950

PATIENT
  Age: 82 Year
  Sex: Female
  Weight: 56 kg

DRUGS (1)
  1. PREMARIN [Suspect]
     Active Substance: ESTROGENS, CONJUGATED
     Indication: ATROPHIC VULVOVAGINITIS
     Dosage: UNK
     Dates: start: 2015, end: 2015

REACTIONS (3)
  - Hypersensitivity [Unknown]
  - Vulvovaginal burning sensation [Unknown]
  - Reaction to drug excipients [Not Recovered/Not Resolved]

NARRATIVE: CASE EVENT DATE: 20151125
